FAERS Safety Report 9303577 (Version 1)
Quarter: 2013Q2

REPORT INFORMATION
  Report Type: Spontaneous
  Country: US (occurrence: None)
  Receive Date: 20130521
  Receipt Date: 20130521
  Transmission Date: 20140414
  Serious: No
  Sender: FDA-Public Use
  Company Number: None

PATIENT
  Age: 59 Year
  Sex: Female
  Weight: 72.58 kg

DRUGS (2)
  1. MYRBETRIG 25MG ASTELLAS [Suspect]
     Indication: HYPERTONIC BLADDER
     Route: 048
     Dates: start: 20130214
  2. LORATADINE TABS [Concomitant]

REACTIONS (2)
  - Urticaria [None]
  - Blood pressure increased [None]
